FAERS Safety Report 25363537 (Version 1)
Quarter: 2025Q2

REPORT INFORMATION
  Report Type: Spontaneous
  Country: US (occurrence: None)
  Receive Date: 20250527
  Receipt Date: 20250527
  Transmission Date: 20250717
  Serious: Yes (Death)
  Sender: FDA-CTU
  Company Number: None

PATIENT
  Sex: Female

DRUGS (11)
  1. POMALYST [Suspect]
     Active Substance: POMALIDOMIDE
     Indication: Plasma cell myeloma
     Dates: start: 20220226, end: 20250520
  2. AMOXICILLIN [Concomitant]
     Active Substance: AMOXICILLIN
  3. CYCLOBENZAPRTAB [Concomitant]
  4. DESONIDE CRE [Concomitant]
  5. DEXAMETHASON TAB [Concomitant]
  6. DICLOFENAC [Concomitant]
     Active Substance: DICLOFENAC
  7. ELIOUIS TAB [Concomitant]
  8. ENTRESTO TAB 49-51MG [Concomitant]
  9. FLUTICASONE SPR [Concomitant]
  10. FUROSEMIDE TAB [Concomitant]
  11. GABAPENTIN [Concomitant]
     Active Substance: GABAPENTIN

REACTIONS (1)
  - Death [None]
